FAERS Safety Report 14112302 (Version 5)
Quarter: 2018Q3

REPORT INFORMATION
  Report Type: Spontaneous
  Country: US (occurrence: US)
  Receive Date: 20171020
  Receipt Date: 20180918
  Transmission Date: 20181010
  Serious: No
  Sender: FDA-Public Use
  Company Number: US-ACTELION-A-NJ2017-161277

PATIENT
  Age: 2 Year
  Sex: Male
  Weight: 14.51 kg

DRUGS (4)
  1. REVATIO [Concomitant]
     Active Substance: SILDENAFIL CITRATE
  2. AMLODIPINE [Concomitant]
     Active Substance: AMLODIPINE BESYLATE
  3. REMODULIN [Concomitant]
     Active Substance: TREPROSTINIL
     Dosage: 132 NG/KG, PER MIN
  4. TRACLEER [Suspect]
     Active Substance: BOSENTAN
     Indication: PULMONARY HYPERTENSION
     Dosage: 31.25 MG, BID
     Route: 048

REACTIONS (7)
  - Hypersensitivity [Unknown]
  - Infusion site rash [Recovering/Resolving]
  - Infusion site swelling [Unknown]
  - Infusion site pain [Unknown]
  - Catheter site abscess [Unknown]
  - Infusion site inflammation [Unknown]
  - Infusion site erythema [Unknown]
